FAERS Safety Report 21571359 (Version 3)
Quarter: 2023Q4

REPORT INFORMATION
  Report Type: Report from Study
  Country: US (occurrence: US)
  Receive Date: 20221109
  Receipt Date: 20231024
  Transmission Date: 20240109
  Serious: No
  Sender: FDA-Public Use
  Company Number: US-IDORSIA-001779-2022-US

PATIENT
  Age: 45 Year
  Sex: Female

DRUGS (5)
  1. QUVIVIQ [Suspect]
     Active Substance: DARIDOREXANT
     Indication: Insomnia
     Dosage: 50 MG, QD
     Route: 048
     Dates: start: 202208, end: 202209
  2. TOPIRAMATE [Concomitant]
     Active Substance: TOPIRAMATE
  3. ASPIRIN [Concomitant]
     Active Substance: ASPIRIN
     Dosage: UNK, QD
  4. SYNTHROID [Concomitant]
     Active Substance: LEVOTHYROXINE SODIUM
  5. CLOZAPINE [Concomitant]
     Active Substance: CLOZAPINE

REACTIONS (8)
  - Hypersensitivity [Recovered/Resolved]
  - Rash [Recovered/Resolved]
  - Eye pruritus [Recovered/Resolved]
  - Erythema [Recovered/Resolved]
  - Rash papular [Recovered/Resolved]
  - Periorbital swelling [Recovered/Resolved]
  - Swelling face [Recovered/Resolved]
  - Dermatitis contact [Recovered/Resolved]

NARRATIVE: CASE EVENT DATE: 20220901
